FAERS Safety Report 5800045-0 (Version None)
Quarter: 2008Q3

REPORT INFORMATION
  Report Type: 
  Country: None (occurrence: None)
  Receive Date: 20080702
  Receipt Date: 20080702
  Transmission Date: 20090109
  Serious: Yes (Other)
  Sender: FDA-Public Use
  Company Number: None

PATIENT
  Age: 82 Year
  Sex: Female

DRUGS (1)
  1. DIGOXIN [Suspect]
     Dosage: TAKE 1 TABLET DAILY 8/2007 TO PRESENT
     Dates: start: 20070801

REACTIONS (3)
  - CARDIOACTIVE DRUG LEVEL INCREASED [None]
  - GASTRIC DISORDER [None]
  - MALAISE [None]
